FAERS Safety Report 6380303-4 (Version None)
Quarter: 2009Q3

REPORT INFORMATION
  Report Type: 
  Country: None (occurrence: None)
  Receive Date: 20090929
  Receipt Date: 20070502
  Transmission Date: 20100115
  Serious: Yes (Hospitalization, Other)
  Sender: FDA-Public Use
  Company Number: US-ASTRAZENECA-2006UW03654

PATIENT
  Age: 14318 Day
  Sex: Male
  Weight: 124.7 kg

DRUGS (18)
  1. SEROQUEL [Suspect]
     Indication: ANXIETY
     Dosage: 25 MG 2 AT BID
     Route: 048
     Dates: start: 20000913
  2. SEROQUEL [Suspect]
     Indication: MAJOR DEPRESSION
     Dosage: 25 MG 2 AT BID
     Route: 048
     Dates: start: 20000913
  3. SEROQUEL [Suspect]
     Dosage: 25 MG - 200 MG
     Route: 048
     Dates: start: 20001201, end: 20040601
  4. SEROQUEL [Suspect]
     Dosage: 25 MG - 200 MG
     Route: 048
     Dates: start: 20001201, end: 20040601
  5. ABILIFY [Concomitant]
     Dosage: 15 MG DAILY
     Dates: start: 20030105
  6. GEODON [Concomitant]
     Dosage: 60 MG DAILY
     Dates: start: 20060101
  7. GEODON [Concomitant]
     Dosage: 20 MG DAILY
     Dates: start: 20060609
  8. LOTENSIN [Concomitant]
     Dates: start: 20000913
  9. VERAPAMIL [Concomitant]
     Route: 048
     Dates: start: 20000913
  10. HYDROCHLOROTHIAZIDE [Concomitant]
     Route: 048
     Dates: start: 20000913
  11. PAXIL [Concomitant]
     Route: 048
     Dates: start: 20000913
  12. BUSPAR [Concomitant]
     Route: 048
     Dates: start: 20000913
  13. VIOXX [Concomitant]
     Dates: start: 20000913
  14. IBUPROFEN [Concomitant]
     Dosage: 600 MG Q8H PRN
     Dates: start: 20000913
  15. XANAX [Concomitant]
     Dates: start: 20000913
  16. ZANTAC [Concomitant]
     Dates: start: 20001220
  17. HUMULIN R [Concomitant]
     Dosage: 70/30, 35 UNITS QAM AND 20 UNITS QPM
     Route: 058
     Dates: start: 20001220
  18. LOZOL [Concomitant]
     Route: 048
     Dates: start: 20001220

REACTIONS (6)
  - BLOOD GLUCOSE ABNORMAL [None]
  - DIABETES MELLITUS [None]
  - DIABETIC KETOACIDOSIS [None]
  - DIABETIC NEPHROPATHY [None]
  - HYPOGLYCAEMIA [None]
  - TYPE 1 DIABETES MELLITUS [None]
